FAERS Safety Report 12313384 (Version 1)
Quarter: 2016Q2

REPORT INFORMATION
  Report Type: Spontaneous
  Country: US (occurrence: US)
  Receive Date: 20160428
  Receipt Date: 20160428
  Transmission Date: 20160815
  Serious: Yes (Other)
  Sender: FDA-Public Use
  Company Number: US-CELGENEUS-USA-2016043971

PATIENT

DRUGS (5)
  1. FLUDARABINE [Concomitant]
     Active Substance: FLUDARABINE PHOSPHATE
     Indication: DRUG THERAPY
     Route: 065
  2. AZACITIDINE INJECTABLE [Suspect]
     Active Substance: AZACITIDINE
     Indication: PRODUCT USED FOR UNKNOWN INDICATION
     Route: 041
  3. AZACITIDINE INJECTABLE [Suspect]
     Active Substance: AZACITIDINE
     Route: 041
  4. MELPHALAN [Concomitant]
     Active Substance: MELPHALAN
     Indication: DRUG THERAPY
     Route: 065
  5. ALEMTUZUMAB [Concomitant]
     Active Substance: ALEMTUZUMAB
     Indication: PROPHYLAXIS AGAINST GRAFT VERSUS HOST DISEASE
     Route: 065

REACTIONS (4)
  - Acute graft versus host disease [Unknown]
  - Chronic graft versus host disease [Unknown]
  - Infection [Unknown]
  - Renal failure [Unknown]
